FAERS Safety Report 6575927-5 (Version None)
Quarter: 2010Q1

REPORT INFORMATION
  Report Type: 
  Country: None (occurrence: None)
  Receive Date: 20100209
  Receipt Date: 20100129
  Transmission Date: 20100710
  Serious: Yes (Hospitalization)
  Sender: FDA-Public Use
  Company Number: US-MYLANLABS-2010S1001542

PATIENT
  Age: 70 Year
  Sex: Male

DRUGS (9)
  1. BROVANA [Suspect]
     Indication: CHRONIC OBSTRUCTIVE PULMONARY DISEASE
     Route: 055
     Dates: start: 20090301, end: 20091001
  2. BROVANA [Suspect]
     Indication: EMPHYSEMA
     Route: 055
     Dates: start: 20090301, end: 20091001
  3. DUONEB [Suspect]
     Route: 055
     Dates: start: 20090301, end: 20091001
  4. DUONEB [Suspect]
     Route: 055
     Dates: start: 20091001
  5. SPIRIVA [Concomitant]
  6. ANABOLIC STEROIDS [Concomitant]
     Route: 048
  7. CLARITIN /00917501/ [Concomitant]
  8. ALAVERT [Concomitant]
  9. FLONASE [Concomitant]

REACTIONS (2)
  - ATRIAL FIBRILLATION [None]
  - TOBACCO USER [None]
